FAERS Safety Report 13872900 (Version 1)
Quarter: 2017Q3

REPORT INFORMATION
  Report Type: Spontaneous
  Country: US (occurrence: US)
  Receive Date: 20170816
  Receipt Date: 20170816
  Transmission Date: 20171127
  Serious: No
  Sender: FDA-Public Use
  Company Number: US-TARO-2016TAR00783

PATIENT
  Sex: Female

DRUGS (2)
  1. PREVACID [Suspect]
     Active Substance: LANSOPRAZOLE
     Indication: GASTROOESOPHAGEAL REFLUX DISEASE
     Dosage: 15 MG, 1X/DAY
     Route: 048
     Dates: start: 20160801, end: 201609
  2. LAMISIL [Suspect]
     Active Substance: TERBINAFINE HYDROCHLORIDE
     Dosage: UNK UNK, 1X/DAY
     Route: 061

REACTIONS (7)
  - Rash pruritic [Recovering/Resolving]
  - Depression [Unknown]
  - Dysphonia [Unknown]
  - Nervousness [Unknown]
  - Blister [Recovering/Resolving]
  - Insomnia [Unknown]
  - Hypersensitivity [Unknown]

NARRATIVE: CASE EVENT DATE: 201609
